FAERS Safety Report 9117331 (Version 1)
Quarter: 2013Q1

REPORT INFORMATION
  Report Type: Spontaneous
  Country: MX (occurrence: MX)
  Receive Date: 20130208
  Receipt Date: 20130208
  Transmission Date: 20140127
  Serious: Yes (Other)
  Sender: FDA-Public Use
  Company Number: PHHY2013MX011774

PATIENT
  Age: 80 Year
  Sex: Female

DRUGS (4)
  1. EXELON PATCH [Suspect]
     Indication: DEMENTIA ALZHEIMER^S TYPE
     Dosage: 4.6 MG, DAILY
     Route: 062
     Dates: start: 20110124
  2. EUTEBROL [Concomitant]
     Indication: DEPRESSION
     Dosage: 1 DF, DAILY
  3. COMENTER//MIRTAZAPINE [Concomitant]
     Dosage: 1 DF, DAILY
  4. HALOPERIDOL [Concomitant]
     Dosage: 1 DF EVERY MONTH

REACTIONS (3)
  - Toxicity to various agents [Not Recovered/Not Resolved]
  - Abnormal behaviour [Not Recovered/Not Resolved]
  - Hallucination [Not Recovered/Not Resolved]
